FAERS Safety Report 9812625 (Version 1)
Quarter: 2014Q1

REPORT INFORMATION
  Report Type: Spontaneous
  Country: US (occurrence: US)
  Receive Date: 20140113
  Receipt Date: 20140113
  Transmission Date: 20141002
  Serious: Yes (Death)
  Sender: FDA-Public Use
  Company Number: US-ASTRAZENECA-2014SE02395

PATIENT
  Age: 58 Year
  Sex: Male

DRUGS (8)
  1. ACETAMINOPHEN [Suspect]
     Route: 065
  2. QUETIAPINE [Suspect]
     Route: 048
  3. HEROIN [Suspect]
     Route: 065
  4. COCAINE [Suspect]
     Route: 065
  5. OXYCODONE [Suspect]
     Route: 065
  6. TRAZODONE [Suspect]
     Route: 065
  7. VERAPAMIL [Suspect]
     Route: 065
  8. QUININE [Suspect]
     Route: 065

REACTIONS (2)
  - Toxicity to various agents [Fatal]
  - Drug abuse [Fatal]
